FAERS Safety Report 17517470 (Version 1)
Quarter: 2020Q1

REPORT INFORMATION
  Report Type: Spontaneous
  Country: US (occurrence: US)
  Receive Date: 20200309
  Receipt Date: 20200309
  Transmission Date: 20200409
  Serious: No
  Sender: FDA-Public Use
  Company Number: US-SA-2020SA060679

PATIENT
  Age: 73 Year
  Sex: Female

DRUGS (4)
  1. METOPROLOL. [Concomitant]
     Active Substance: METOPROLOL
  2. BABY ASPIRIN [Concomitant]
     Active Substance: ASPIRIN
     Dosage: UNK UNK, QD
  3. REPATHA [Concomitant]
     Active Substance: EVOLOCUMAB
  4. PRALUENT [Suspect]
     Active Substance: ALIROCUMAB
     Indication: BLOOD CHOLESTEROL INCREASED
     Dosage: 75 MG, Q2M
     Route: 058
     Dates: start: 20200301

REACTIONS (12)
  - Injection site pain [Unknown]
  - Injection site inflammation [Unknown]
  - Eye irritation [Unknown]
  - Nasal congestion [Unknown]
  - Thirst [Unknown]
  - Cough [Unknown]
  - Injection site rash [Unknown]
  - Head discomfort [Unknown]
  - Pollakiuria [Unknown]
  - Injection site swelling [Unknown]
  - Upper-airway cough syndrome [Unknown]
  - Nasopharyngitis [Unknown]

NARRATIVE: CASE EVENT DATE: 202003
